FAERS Safety Report 5695369-4 (Version None)
Quarter: 2008Q2

REPORT INFORMATION
  Report Type: 
  Country: None (occurrence: None)
  Receive Date: 20080403
  Receipt Date: 20080326
  Transmission Date: 20081010
  Serious: Yes (Other)
  Sender: FDA-Public Use
  Company Number: 2008RL000113

PATIENT
  Age: 69 Year
  Sex: Male
  Weight: 98.4306 kg

DRUGS (6)
  1. RYTHMOL SR [Suspect]
     Indication: ATRIAL FIBRILLATION
     Dosage: 425 MG;BID;PO, 325 MG;BID;PO
     Route: 048
     Dates: start: 20080201, end: 20080320
  2. RYTHMOL SR [Suspect]
     Indication: ATRIAL FIBRILLATION
     Dosage: 425 MG;BID;PO, 325 MG;BID;PO
     Route: 048
     Dates: start: 20080301
  3. RYTHMOL [Suspect]
     Indication: ATRIAL FIBRILLATION
     Dosage: 225 MG;
     Dates: end: 20080201
  4. NIASPAN [Concomitant]
  5. WARFARIN SODIUM [Concomitant]
  6. NORVASC [Concomitant]

REACTIONS (1)
  - ATRIAL FIBRILLATION [None]
